FAERS Safety Report 7199275-8 (Version None)
Quarter: 2010Q4

REPORT INFORMATION
  Report Type: 
  Country: None (occurrence: None)
  Receive Date: 20101228
  Receipt Date: 20101220
  Transmission Date: 20110411
  Serious: Yes (Other)
  Sender: FDA-Public Use
  Company Number: CO-PFIZER INC-2010108909

PATIENT
  Age: 80 Year
  Sex: Male

DRUGS (9)
  1. DETRUSITOL [Suspect]
     Dosage: UNK
     Dates: start: 20100101, end: 20101101
  2. METFORMIN [Concomitant]
     Indication: DIABETES MELLITUS
     Dosage: UNK
  3. BETAHISTINE [Concomitant]
     Indication: DIZZINESS
     Dosage: UNK
  4. NIMOTOP [Concomitant]
     Indication: DIZZINESS
     Dosage: UNK
  5. NIMOTOP [Concomitant]
     Indication: CEREBROVASCULAR DISORDER
  6. LEXAPRO [Concomitant]
     Indication: DEPRESSION
     Dosage: UNK
  7. CLOPIDOGREL [Concomitant]
     Indication: HYPERTENSION
     Dosage: UNK
     Route: 048
  8. LOSARTAN [Concomitant]
     Indication: HYPERTENSION
     Dosage: UNK
     Route: 048
  9. CALCIUM CARBONATE [Concomitant]
     Dosage: UNK
     Route: 048

REACTIONS (3)
  - FALL [None]
  - SPINAL FRACTURE [None]
  - URINARY TRACT INFECTION [None]
